FAERS Safety Report 9436187 (Version 2)
Quarter: 2014Q1

REPORT INFORMATION
  Report Type: Not Available
  Country: GB (occurrence: GB)
  Receive Date: 20130801
  Receipt Date: 20140305
  Transmission Date: 20141002
  Serious: Yes (Congenital Anomaly)
  Sender: FDA-Public Use
  Company Number: GB-RB-056555-13

PATIENT
  Age: 36 Year
  Sex: Female

DRUGS (7)
  1. SUBUTEX [Suspect]
     Indication: PRODUCT USED FOR UNKNOWN INDICATION
     Route: 060
  2. DIAZEPAM [Suspect]
     Indication: PRODUCT USED FOR UNKNOWN INDICATION
     Route: 048
  3. DIAZEPAM [Suspect]
     Route: 048
  4. OLANZAPINE [Suspect]
     Indication: SCHIZOPHRENIA
     Route: 048
  5. OMEPRAZOLE [Suspect]
     Indication: PRODUCT USED FOR UNKNOWN INDICATION
     Route: 048
  6. PREGABALIN [Suspect]
     Indication: PAIN IN EXTREMITY
     Route: 048
  7. ZOPICLONE [Suspect]
     Indication: PRODUCT USED FOR UNKNOWN INDICATION
     Route: 048

REACTIONS (6)
  - Drug abuse [Unknown]
  - Exposure during pregnancy [Unknown]
  - Congenital scoliosis [Not Recovered/Not Resolved]
  - Foetal malformation [Not Recovered/Not Resolved]
  - Single functional kidney [Not Recovered/Not Resolved]
  - Limb reduction defect [Not Recovered/Not Resolved]
